FAERS Safety Report 18270752 (Version 1)
Quarter: 2020Q3

REPORT INFORMATION
  Report Type: Report from Study
  Country: JP (occurrence: JP)
  Receive Date: 20200915
  Receipt Date: 20200915
  Transmission Date: 20201103
  Serious: Yes (Hospitalization, Other)
  Sender: FDA-Public Use
  Company Number: JP-JNJFOC-A-CH2019-186697

PATIENT
  Age: 15 Year
  Sex: Female
  Weight: 68 kg

DRUGS (18)
  1. UPTRAVI [Suspect]
     Active Substance: SELEXIPAG
     Indication: PULMONARY ARTERIAL HYPERTENSION
     Dosage: 0.2 MG, QD
     Route: 048
     Dates: start: 20190312
  2. UPTRAVI [Suspect]
     Active Substance: SELEXIPAG
     Route: 048
     Dates: start: 20190706
  3. UPTRAVI [Suspect]
     Active Substance: SELEXIPAG
     Route: 048
     Dates: start: 20191227
  4. AZOSEMIDE [Suspect]
     Active Substance: AZOSEMIDE
     Indication: PULMONARY HYPERTENSION
     Dosage: 60 MG, QD
     Route: 048
     Dates: start: 20190706
  5. JUVELA [Concomitant]
     Active Substance: .ALPHA.-TOCOPHEROL\RETINOL
  6. AZOSEMIDE [Suspect]
     Active Substance: AZOSEMIDE
     Indication: FLUID RETENTION
  7. ZINC. [Concomitant]
     Active Substance: ZINC
  8. BERAPROST SODIUM [Suspect]
     Active Substance: BERAPROST SODIUM
     Indication: PORTOPULMONARY HYPERTENSION
     Dosage: 20 MCG, TID
     Route: 048
     Dates: start: 20181112, end: 20190312
  9. AZOSEMIDE [Suspect]
     Active Substance: AZOSEMIDE
     Indication: CARDIAC FAILURE CONGESTIVE
  10. PIARLE [Concomitant]
     Active Substance: LACTULOSE
  11. LIVACT [Concomitant]
     Active Substance: AMINO ACIDS, SOURCE UNSPECIFIED
  12. UPTRAVI [Suspect]
     Active Substance: SELEXIPAG
     Route: 048
     Dates: start: 20190318
  13. URSODEOXYCHOLIC ACID [Concomitant]
     Active Substance: URSODIOL
  14. SAWACILLIN [Concomitant]
     Active Substance: AMOXICILLIN
  15. MIYA?BM [Concomitant]
     Active Substance: CLOSTRIDIUM BUTYRICUM SPORES STRAIN M-55
     Dosage: 3 DF
  16. UPTRAVI [Suspect]
     Active Substance: SELEXIPAG
     Dosage: 0.8MG AND 0.6MG/DAY
     Route: 048
     Dates: start: 20190619
  17. GLAKAY [Concomitant]
     Active Substance: MENATETRENONE
  18. OPSUMIT [Suspect]
     Active Substance: MACITENTAN
     Indication: PULMONARY ARTERIAL HYPERTENSION
     Dosage: 10 MG, QD
     Route: 048
     Dates: start: 20181115, end: 20190706

REACTIONS (13)
  - Blood pressure increased [Recovering/Resolving]
  - Off label use [Unknown]
  - Portopulmonary hypertension [Recovering/Resolving]
  - Liver transplant [Unknown]
  - Hypokalaemia [Unknown]
  - Flushing [Recovering/Resolving]
  - Headache [Recovering/Resolving]
  - Condition aggravated [Recovering/Resolving]
  - Pulmonary hypertension [Recovered/Resolved]
  - Cardiac failure congestive [Recovered/Resolved]
  - Pulmonary arterial pressure increased [Recovering/Resolving]
  - Pancytopenia [Not Recovered/Not Resolved]
  - Fluid retention [Recovered/Resolved]

NARRATIVE: CASE EVENT DATE: 20181115
